FAERS Safety Report 7019148-0 (Version None)
Quarter: 2010Q3

REPORT INFORMATION
  Report Type: 
  Country: None (occurrence: None)
  Receive Date: 20100928
  Receipt Date: 20100927
  Transmission Date: 20110219
  Serious: Yes (Life-Threatening, Hospitalization)
  Sender: FDA-Public Use
  Company Number: NL-ABBOTT-10P-114-0671965-00

PATIENT
  Age: 38 Year
  Sex: Female

DRUGS (12)
  1. HUMIRA [Suspect]
     Indication: RHEUMATOID ARTHRITIS
  2. HUMIRA [Suspect]
     Indication: SYSTEMIC LUPUS ERYTHEMATOSUS
  3. HUMIRA [Suspect]
     Indication: VASCULITIS
  4. HUMIRA [Suspect]
     Indication: FIBROMYALGIA
  5. PREDNISONE [Suspect]
     Indication: RHEUMATOID ARTHRITIS
  6. PREDNISONE [Suspect]
     Indication: SYSTEMIC LUPUS ERYTHEMATOSUS
  7. PREDNISONE [Suspect]
     Indication: VASCULITIS
  8. PREDNISONE [Suspect]
     Indication: FIBROMYALGIA
  9. METHOTREXATE [Suspect]
     Indication: RHEUMATOID ARTHRITIS
  10. METHOTREXATE [Suspect]
     Indication: SYSTEMIC LUPUS ERYTHEMATOSUS
  11. METHOTREXATE [Suspect]
     Indication: VASCULITIS
  12. METHOTREXATE [Suspect]
     Indication: FIBROMYALGIA

REACTIONS (8)
  - ANXIETY [None]
  - DELUSION [None]
  - DEPRESSION [None]
  - EMOTIONAL DISTRESS [None]
  - PSYCHOTIC DISORDER [None]
  - SUICIDE ATTEMPT [None]
  - SYNCOPE [None]
  - TREATMENT NONCOMPLIANCE [None]
